FAERS Safety Report 4424665-3 (Version None)
Quarter: 2004Q3

REPORT INFORMATION
  Report Type: 
  Country: None (occurrence: None)
  Receive Date: 20040719
  Receipt Date: 20040427
  Transmission Date: 20050211
  Serious: Yes (Hospitalization)
  Sender: FDA-Public Use
  Company Number: 196845

PATIENT
  Age: 54 Year
  Sex: Female
  Weight: 95.2554 kg

DRUGS (6)
  1. AVONEX [Suspect]
     Indication: MULTIPLE SCLEROSIS
     Dosage: 30 MCG QW IM
     Route: 030
     Dates: start: 20021101, end: 20040101
  2. AVONEX [Suspect]
     Indication: MULTIPLE SCLEROSIS
     Dosage: 30  MCG QW IM
     Route: 030
     Dates: start: 20040101
  3. ALDACTONE [Concomitant]
  4. LISINOPRIL [Concomitant]
  5. K-DUR 10 [Concomitant]
  6. BUMEX [Concomitant]

REACTIONS (6)
  - CONVULSION [None]
  - HEADACHE [None]
  - INFLUENZA LIKE ILLNESS [None]
  - MEDICAL DEVICE IMPLANTATION [None]
  - MULTIPLE SCLEROSIS RELAPSE [None]
  - MUSCLE SPASMS [None]
